FAERS Safety Report 5635050-0 (Version None)
Quarter: 2008Q1

REPORT INFORMATION
  Report Type: 
  Country: None (occurrence: None)
  Receive Date: 20080222
  Receipt Date: 20080212
  Transmission Date: 20080703
  Serious: Yes (Other)
  Sender: FDA-Public Use
  Company Number: US-PFIZER INC-2008013307

PATIENT
  Sex: Female

DRUGS (2)
  1. ZOLOFT [Suspect]
  2. LYRICA [Suspect]

REACTIONS (2)
  - BRAIN NEOPLASM [None]
  - SURGERY [None]
